FAERS Safety Report 5802843-6 (Version None)
Quarter: 2008Q3

REPORT INFORMATION
  Report Type: 
  Country: None (occurrence: None)
  Receive Date: 20080708
  Receipt Date: 20080625
  Transmission Date: 20090109
  Serious: Yes (Hospitalization)
  Sender: FDA-Public Use
  Company Number: FR-NOVOPROD-276995

PATIENT
  Sex: Female

DRUGS (1)
  1. NOVONORM [Suspect]
     Indication: DIABETES MELLITUS

REACTIONS (2)
  - DRUG ABUSE [None]
  - HYPOGLYCAEMIA [None]
